FAERS Safety Report 17135950 (Version 1)
Quarter: 2019Q4

REPORT INFORMATION
  Report Type: Report from Study
  Country: AU (occurrence: AU)
  Receive Date: 20191210
  Receipt Date: 20191210
  Transmission Date: 20200122
  Serious: Yes (Hospitalization, Other)
  Sender: FDA-Public Use
  Company Number: AU-OTSUKA-2019_004459

PATIENT
  Age: 54 Year
  Sex: Female

DRUGS (2)
  1. TOLVAPTAN [Suspect]
     Active Substance: TOLVAPTAN
     Dosage: 15 MG, QD (IN EVENING)
     Route: 065
  2. TOLVAPTAN [Suspect]
     Active Substance: TOLVAPTAN
     Indication: CONGENITAL CYSTIC KIDNEY DISEASE
     Dosage: 45 MG, QD (IN MORNING)
     Route: 065

REACTIONS (27)
  - Haemorrhagic cyst [Unknown]
  - C-reactive protein increased [Unknown]
  - Total cholesterol/HDL ratio decreased [Unknown]
  - Blood calcium increased [Recovered/Resolved]
  - Hypertension [Unknown]
  - Cardiac hypertrophy [Unknown]
  - High density lipoprotein decreased [Unknown]
  - Blood triglycerides increased [Unknown]
  - Lymphocyte count decreased [Recovered/Resolved]
  - Creatinine urine decreased [Not Recovered/Not Resolved]
  - Blood alkaline phosphatase increased [Not Recovered/Not Resolved]
  - Urinary tract infection [Unknown]
  - Syncope [Unknown]
  - Blood bicarbonate decreased [Recovered/Resolved]
  - Lymphocyte count decreased [Unknown]
  - Urine protein/creatinine ratio increased [Not Recovered/Not Resolved]
  - Blood osmolarity increased [Not Recovered/Not Resolved]
  - Gamma-glutamyltransferase increased [Recovering/Resolving]
  - Intentional dose omission [Unknown]
  - Blood pressure fluctuation [Unknown]
  - Low density lipoprotein increased [Unknown]
  - Blood cholesterol increased [Unknown]
  - Blood glucose increased [Unknown]
  - Blood creatinine increased [Not Recovered/Not Resolved]
  - Blood uric acid increased [Not Recovered/Not Resolved]
  - Rash [Unknown]
  - Drug interaction [Unknown]

NARRATIVE: CASE EVENT DATE: 20190202
